FAERS Safety Report 24151857 (Version 3)
Quarter: 2024Q4

REPORT INFORMATION
  Report Type: Spontaneous
  Country: JP (occurrence: JP)
  Receive Date: 20240730
  Receipt Date: 20241010
  Transmission Date: 20250115
  Serious: Yes (Death)
  Sender: PFIZER
  Company Number: JP-PFIZER INC-202400225436

PATIENT
  Age: 67 Year
  Sex: Male
  Weight: 59.7 kg

DRUGS (3)
  1. ELREXFIO [Suspect]
     Active Substance: ELRANATAMAB-BCMM
     Indication: Plasma cell myeloma
     Dosage: 12 MG ONCE
     Route: 058
     Dates: start: 20240624, end: 20240624
  2. ELREXFIO [Suspect]
     Active Substance: ELRANATAMAB-BCMM
     Dosage: 32 MG ONCE
     Route: 058
     Dates: start: 20240627, end: 20240627
  3. ELREXFIO [Suspect]
     Active Substance: ELRANATAMAB-BCMM
     Dosage: 76 MG
     Route: 058
     Dates: start: 20240701

REACTIONS (3)
  - Neoplasm progression [Fatal]
  - Organising pneumonia [Fatal]
  - Infection [Fatal]
